FAERS Safety Report 9886849 (Version 1)
Quarter: 2014Q1

REPORT INFORMATION
  Report Type: Spontaneous
  Country: US (occurrence: US)
  Receive Date: 20140210
  Receipt Date: 20140210
  Transmission Date: 20141002
  Serious: Yes (Death, Other)
  Sender: FDA-Public Use
  Company Number: US-GILEAD-2014-0094111

PATIENT
  Sex: Male

DRUGS (10)
  1. LETAIRIS [Suspect]
     Indication: PULMONARY ARTERIAL HYPERTENSION
     Dosage: 10 MG, QD
     Route: 048
     Dates: start: 20131219, end: 20140101
  2. PROPRANOLOL [Concomitant]
  3. FUROSEMIDE [Concomitant]
  4. GLYBURIDE [Concomitant]
  5. METFORMIN [Concomitant]
  6. ENALAPRIL [Concomitant]
  7. BABY ASPIRIN [Concomitant]
  8. TRAZODONE [Concomitant]
  9. LIPITOR [Concomitant]
  10. PEPCID                             /00706001/ [Concomitant]

REACTIONS (1)
  - Death [Fatal]
